FAERS Safety Report 18784811 (Version 7)
Quarter: 2025Q3

REPORT INFORMATION
  Report Type: Report from Study
  Country: CA (occurrence: CA)
  Receive Date: 20210126
  Receipt Date: 20250812
  Transmission Date: 20251020
  Serious: Yes (Other)
  Sender: TAKEDA
  Company Number: CA-TAKEDA-2018TUS019992

PATIENT
  Age: 33 Year
  Sex: Male
  Weight: 62.2 kg

DRUGS (13)
  1. VEDOLIZUMAB [Suspect]
     Active Substance: VEDOLIZUMAB
     Indication: Crohn^s disease
  2. VEDOLIZUMAB [Suspect]
     Active Substance: VEDOLIZUMAB
  3. VEDOLIZUMAB [Suspect]
     Active Substance: VEDOLIZUMAB
  4. VEDOLIZUMAB [Suspect]
     Active Substance: VEDOLIZUMAB
  5. VEDOLIZUMAB [Suspect]
     Active Substance: VEDOLIZUMAB
  6. VEDOLIZUMAB [Suspect]
     Active Substance: VEDOLIZUMAB
  7. VEDOLIZUMAB [Suspect]
     Active Substance: VEDOLIZUMAB
  8. VEDOLIZUMAB [Suspect]
     Active Substance: VEDOLIZUMAB
  9. VEDOLIZUMAB [Suspect]
     Active Substance: VEDOLIZUMAB
  10. DOXYCYCLINE [Concomitant]
     Active Substance: DOXYCYCLINE
     Dosage: 100 MILLIGRAM, QD
  11. METRONIDAZOLE [Concomitant]
     Active Substance: METRONIDAZOLE
     Dosage: UNK UNK, TID
  12. VITAMIN B12 [Concomitant]
     Active Substance: CYANOCOBALAMIN
     Dosage: 1000 MICROGRAM, QD
  13. MIRTAZAPINE [Concomitant]
     Active Substance: MIRTAZAPINE

REACTIONS (19)
  - Crohn^s disease [Unknown]
  - Abscess intestinal [Not Recovered/Not Resolved]
  - Ileal stenosis [Unknown]
  - Small intestinal obstruction [Unknown]
  - Ileal ulcer [Unknown]
  - Lower respiratory tract infection [Recovering/Resolving]
  - Anorectal polyp [Unknown]
  - Gastrointestinal infection [Unknown]
  - Pain [Not Recovered/Not Resolved]
  - Illness [Not Recovered/Not Resolved]
  - Drug ineffective [Unknown]
  - Chest pain [Recovered/Resolved]
  - Vomiting [Unknown]
  - Nasal congestion [Recovered/Resolved]
  - Nasopharyngitis [Not Recovered/Not Resolved]
  - Back pain [Unknown]
  - Bronchitis [Unknown]
  - Oropharyngeal pain [Recovering/Resolving]
  - Pyrexia [Unknown]

NARRATIVE: CASE EVENT DATE: 20181018
